FAERS Safety Report 5387201-3 (Version None)
Quarter: 2007Q3

REPORT INFORMATION
  Report Type: 
  Country: None (occurrence: None)
  Receive Date: 20070711
  Receipt Date: 20070625
  Transmission Date: 20080115
  Serious: Yes (Hospitalization)
  Sender: FDA-Public Use
  Company Number: ALK_00230_2007

PATIENT
  Sex: Male
  Weight: 75.7507 kg

DRUGS (1)
  1. VIVITROL [Suspect]
     Indication: ALCOHOLISM
     Dosage: (380 MG INTRAMUSCULAR)
     Route: 030
     Dates: start: 20070130, end: 20070501

REACTIONS (10)
  - BLOOD GLUCOSE INCREASED [None]
  - CELLULITIS [None]
  - FASCIITIS [None]
  - GAIT DISTURBANCE [None]
  - INJECTION SITE ABSCESS [None]
  - INJECTION SITE PAIN [None]
  - MYOSITIS [None]
  - PAIN [None]
  - PAIN IN EXTREMITY [None]
  - SWELLING [None]
